FAERS Safety Report 8853370 (Version 1)
Quarter: 2012Q4

REPORT INFORMATION
  Report Type: 
  Country: CO (occurrence: CO)
  Receive Date: 20121022
  Receipt Date: 20121022
  Transmission Date: 20130627
  Serious: Yes (Life-Threatening, Hospitalization, Disabling)
  Sender: FDA-Public Use
  Company Number: CO-B.I. PHARMACEUTICALS,INC./RIDGEFIELD-2012-RA-00306RA

PATIENT
  Age: 77 Year
  Sex: Female
  Weight: 76 kg

DRUGS (1)
  1. PRADAXA [Suspect]
     Indication: AORTIC VALVE REPLACEMENT
     Dosage: 220 mg
     Route: 048
     Dates: end: 20121017

REACTIONS (1)
  - Cerebrovascular accident [Not Recovered/Not Resolved]
